FAERS Safety Report 8458833-0 (Version None)
Quarter: 2012Q2

REPORT INFORMATION
  Report Type: 
  Country: None (occurrence: None)
  Receive Date: 20120622
  Receipt Date: 20120618
  Transmission Date: 20120825
  Serious: Yes (Death)
  Sender: FDA-Public Use
  Company Number: US-PFIZER INC-2012146545

PATIENT
  Sex: Female
  Weight: 101 kg

DRUGS (3)
  1. VFEND [Suspect]
     Indication: GRAFT VERSUS HOST DISEASE
  2. VFEND [Suspect]
     Indication: FUNGAL INFECTION
     Dosage: 200 MG, 2X/DAY
     Dates: start: 20111012
  3. VFEND [Suspect]
     Indication: STEM CELL TRANSPLANT

REACTIONS (1)
  - ACUTE MYELOID LEUKAEMIA [None]
